FAERS Safety Report 7039553-6 (Version None)
Quarter: 2010Q4

REPORT INFORMATION
  Report Type: 
  Country: None (occurrence: None)
  Receive Date: 20101012
  Receipt Date: 20101004
  Transmission Date: 20110411
  Serious: Yes (Life-Threatening, Congenital Anomaly)
  Sender: FDA-Public Use
  Company Number: A0693647A

PATIENT
  Sex: Male

DRUGS (6)
  1. PAXIL [Suspect]
     Indication: STRESS
     Dosage: 20MG PER DAY
     Dates: start: 20000601, end: 20040801
  2. PAROXETINE HYDROCHLORIDE [Suspect]
     Indication: STRESS
     Route: 048
  3. VITAMIN AND MINERAL PRENATAL SUPPLEMENT W/ FOLIC ACID CAP [Concomitant]
     Indication: PREGNANCY
     Dosage: 27MG PER DAY
     Dates: start: 20030901, end: 20050501
  4. GINGER [Concomitant]
     Indication: PRODUCT USED FOR UNKNOWN INDICATION
  5. AMBIEN [Concomitant]
     Indication: PRODUCT USED FOR UNKNOWN INDICATION
     Dates: start: 20031201
  6. PREVACID [Concomitant]
     Dosage: 30MG AT NIGHT

REACTIONS (6)
  - CONGENITAL ANOMALY [None]
  - DRUG EXPOSURE DURING PREGNANCY [None]
  - HERNIA [None]
  - HYDROCELE [None]
  - PYLORIC STENOSIS [None]
  - VENTRICULAR SEPTAL DEFECT [None]
